FAERS Safety Report 8332667-X (Version None)
Quarter: 2012Q2

REPORT INFORMATION
  Report Type: 
  Country: None (occurrence: None)
  Receive Date: 20120503
  Receipt Date: 20120418
  Transmission Date: 20120825
  Serious: Yes (Other)
  Sender: FDA-Public Use
  Company Number: CA-JNJFOC-20120408620

PATIENT
  Sex: Female
  Weight: 51.5 kg

DRUGS (4)
  1. REMICADE [Suspect]
     Indication: COLITIS ULCERATIVE
     Route: 042
     Dates: start: 20110419
  2. MULTIPLE VITAMINS [Concomitant]
     Route: 065
  3. ASACOL [Concomitant]
     Route: 065
  4. REMICADE [Suspect]
     Route: 042
     Dates: start: 20120418

REACTIONS (2)
  - COLOSTOMY [None]
  - COLITIS ULCERATIVE [None]
